FAERS Safety Report 5094151-9 (Version None)
Quarter: 2006Q3

REPORT INFORMATION
  Report Type: 
  Country: None (occurrence: None)
  Receive Date: 20060831
  Receipt Date: 20060823
  Transmission Date: 20061208
  Serious: Yes (Hospitalization)
  Sender: FDA-Public Use
  Company Number: US-JNJFOC-20060805505

PATIENT
  Sex: Female

DRUGS (3)
  1. RISPERDAL [Suspect]
     Indication: SCHIZOPHRENIA
     Route: 048
  2. HALDOL [Suspect]
     Indication: SCHIZOPHRENIA
  3. ANTIPSYCHOTIC [Concomitant]

REACTIONS (2)
  - DYSARTHRIA [None]
  - TREMOR [None]
